FAERS Safety Report 7276220-8 (Version None)
Quarter: 2011Q1

REPORT INFORMATION
  Report Type: 
  Country: None (occurrence: None)
  Receive Date: 20110204
  Receipt Date: 20110131
  Transmission Date: 20110831
  Serious: Yes (Death)
  Sender: FDA-Public Use
  Company Number: PHHY2010US78282

PATIENT
  Sex: Male

DRUGS (1)
  1. GLEEVEC [Suspect]
     Indication: COLON CANCER
     Dosage: 400 MG, UNK
     Route: 048
     Dates: start: 20100609

REACTIONS (3)
  - NEOPLASM MALIGNANT [None]
  - RENAL FAILURE [None]
  - COLON CANCER [None]
